FAERS Safety Report 5560524-0 (Version None)
Quarter: 2007Q4

REPORT INFORMATION
  Report Type: 
  Country: None (occurrence: None)
  Receive Date: 20071215
  Receipt Date: 20071109
  Transmission Date: 20080405
  Serious: No
  Sender: FDA-Public Use
  Company Number: US-ABBOTT-07P-163-0424438-00

PATIENT
  Sex: Female
  Weight: 100 kg

DRUGS (4)
  1. HUMIRA [Suspect]
     Indication: PSORIATIC ARTHROPATHY
     Route: 058
     Dates: start: 20071108
  2. INEGY [Concomitant]
     Indication: BLOOD CHOLESTEROL INCREASED
     Dosage: 10/40MG (TOTAL DAILY DOSE) 10/40MG (UNIT DOSE)
     Route: 048
  3. DOXYCYCLINE [Concomitant]
     Indication: GINGIVAL DISORDER
     Route: 048
  4. DULOXETINE HYDROCHLORIDE [Concomitant]
     Indication: ANXIETY
     Route: 048

REACTIONS (1)
  - ACCIDENTAL EXPOSURE [None]
